FAERS Safety Report 25156337 (Version 3)
Quarter: 2025Q2

REPORT INFORMATION
  Report Type: Spontaneous
  Country: PT (occurrence: PT)
  Receive Date: 20250403
  Receipt Date: 20250507
  Transmission Date: 20250717
  Serious: Yes (Hospitalization)
  Sender: BAUSCH AND LOMB
  Company Number: PT-BAUSCH-BL-2025-004243

PATIENT
  Age: 43 Year
  Sex: Female

DRUGS (1)
  1. MESALAMINE [Suspect]
     Active Substance: MESALAMINE
     Indication: Colitis ulcerative
     Dosage: DRUG STARTED THREE WEEKS PRIOR ADMISSION
     Route: 065

REACTIONS (2)
  - Dilated cardiomyopathy [Recovering/Resolving]
  - Cardiac failure acute [Recovering/Resolving]
